FAERS Safety Report 13329373 (Version 2)
Quarter: 2017Q1

REPORT INFORMATION
  Report Type: Report from Study
  Country: IT (occurrence: IT)
  Receive Date: 20170313
  Receipt Date: 20170316
  Transmission Date: 20170428
  Serious: Yes (Hospitalization)
  Sender: FDA-Public Use
  Company Number: IT-INCYTE CORPORATION-2017IN001798

PATIENT
  Age: 47 Year
  Sex: Male
  Weight: 92 kg

DRUGS (10)
  1. OMEPRAZOLE. [Concomitant]
     Active Substance: OMEPRAZOLE
     Indication: PRODUCT USED FOR UNKNOWN INDICATION
     Dosage: UNK
     Route: 065
     Dates: start: 20160516
  2. VISMODEGIB [Suspect]
     Active Substance: VISMODEGIB
     Indication: MYELOFIBROSIS
     Dosage: 150 MG, QD
     Route: 048
     Dates: start: 20170216
  3. VISMODEGIB [Suspect]
     Active Substance: VISMODEGIB
     Indication: MYELOFIBROSIS
     Dosage: UNK UNK, QD
     Route: 048
     Dates: start: 20160609
  4. JAKAVI [Suspect]
     Active Substance: RUXOLITINIB
     Dosage: 15 MG, BID
     Route: 048
     Dates: start: 20170216
  5. LASIX [Concomitant]
     Active Substance: FUROSEMIDE
     Indication: PRODUCT USED FOR UNKNOWN INDICATION
     Dosage: UNK
     Route: 065
     Dates: start: 2015
  6. ZYLORIC [Concomitant]
     Active Substance: ALLOPURINOL
     Indication: PROPHYLAXIS
  7. JAKAVI [Suspect]
     Active Substance: RUXOLITINIB
     Indication: MYELOFIBROSIS
     Dosage: BID (TWICE A DAY)
     Route: 048
     Dates: start: 20160609
  8. CARDIOASPIRIN [Concomitant]
     Active Substance: ASPIRIN
     Indication: PRODUCT USED FOR UNKNOWN INDICATION
     Dosage: UNK
     Route: 065
     Dates: start: 1998
  9. CARDIOASPIRIN [Concomitant]
     Active Substance: ASPIRIN
     Indication: MYELOFIBROSIS
  10. ZYLORIC [Concomitant]
     Active Substance: ALLOPURINOL
     Indication: PRODUCT USED FOR UNKNOWN INDICATION
     Dosage: UNK
     Route: 065
     Dates: start: 2014

REACTIONS (1)
  - Enterocolitis infectious [Recovering/Resolving]

NARRATIVE: CASE EVENT DATE: 20170217
